FAERS Safety Report 9155105 (Version 1)
Quarter: 2013Q1

REPORT INFORMATION
  Report Type: Spontaneous
  Country: GB (occurrence: None)
  Receive Date: 20130205
  Receipt Date: 20130205
  Transmission Date: 20140127
  Serious: Yes (Hospitalization, Other)
  Sender: FDA-Public Use
  Company Number: 2013-01746

PATIENT
  Age: 85 Year
  Sex: Female
  Weight: 65 kg

DRUGS (2)
  1. CITALOPRAM HYDROBROMIDE (UNKNOWN) (CITALOPRAM HYDROBROMIDE) UNK, UNKUNK [Suspect]
     Indication: DEPRESSION
     Route: 048
     Dates: end: 20130111
  2. OMEPRAZOL/00661201/(OMEPRAZOLE) [Concomitant]

REACTIONS (4)
  - Hyponatraemia [None]
  - Confusional state [None]
  - Lethargy [None]
  - Activities of daily living impaired [None]
